FAERS Safety Report 17164467 (Version 2)
Quarter: 2019Q4

REPORT INFORMATION
  Report Type: Spontaneous
  Country: US (occurrence: US)
  Receive Date: 20191217
  Receipt Date: 20191223
  Transmission Date: 20200122
  Serious: No
  Sender: FDA-Public Use
  Company Number: US-PFIZER INC-2019537235

PATIENT
  Age: 15 Year
  Sex: Female
  Weight: 63.45 kg

DRUGS (1)
  1. DEPO-PROVERA [Suspect]
     Active Substance: MEDROXYPROGESTERONE ACETATE
     Indication: MENSTRUAL DISORDER
     Dosage: 1 DF, EVERY 3 MONTHS [1 INJECTION EVERY 3 MONTHS]

REACTIONS (5)
  - Product use in unapproved indication [Unknown]
  - Mental disorder [Unknown]
  - Product physical issue [Unknown]
  - Incorrect dose administered [Unknown]
  - Off label use [Unknown]

NARRATIVE: CASE EVENT DATE: 20191210
